FAERS Safety Report 8076385-4 (Version None)
Quarter: 2012Q1

REPORT INFORMATION
  Report Type: 
  Country: None (occurrence: None)
  Receive Date: 20120127
  Receipt Date: 20120127
  Transmission Date: 20120608
  Serious: Yes (Other)
  Sender: FDA-Public Use
  Company Number: None

PATIENT
  Age: 45 Year
  Sex: Female
  Weight: 81.646 kg

DRUGS (2)
  1. LEVOFLOXACIN [Suspect]
     Indication: STREPTOCOCCAL INFECTION
     Dosage: 1 TABLET DAILY - 750 MG
     Dates: start: 20111227, end: 20120103
  2. LEVOFLOXACIN [Suspect]
     Indication: INFLUENZA LIKE ILLNESS
     Dosage: 1 TABLET DAILY - 750 MG
     Dates: start: 20111227, end: 20120103

REACTIONS (5)
  - ROTATOR CUFF SYNDROME [None]
  - MUSCULAR WEAKNESS [None]
  - TENDON DISORDER [None]
  - MUSCULOSKELETAL PAIN [None]
  - PAIN IN EXTREMITY [None]
